FAERS Safety Report 5008674-1 (Version None)
Quarter: 2006Q2

REPORT INFORMATION
  Report Type: 
  Country: None (occurrence: None)
  Receive Date: 20060523
  Receipt Date: 20060516
  Transmission Date: 20061013
  Serious: Yes (Hospitalization)
  Sender: FDA-Public Use
  Company Number: FR-GLAXOSMITHKLINE-B0423991A

PATIENT
  Age: 2 Year
  Sex: Female
  Weight: 11 kg

DRUGS (4)
  1. VENTOLIN [Suspect]
     Indication: NASOPHARYNGITIS
     Dosage: 3PUFF SIX TIMES PER DAY
     Route: 055
     Dates: start: 20060418, end: 20060420
  2. HEXAPNEUMINE [Suspect]
     Dosage: 1SUP IN THE MORNING
     Route: 054
     Dates: start: 20060419, end: 20060420
  3. CELESTENE [Concomitant]
     Indication: NASOPHARYNGITIS
     Dates: start: 20060418
  4. BRONCHOKOD [Concomitant]
     Indication: NASOPHARYNGITIS
     Dates: start: 20060418

REACTIONS (5)
  - BLOOD GLUCOSE DECREASED [None]
  - BLOOD SODIUM DECREASED [None]
  - CONVULSION [None]
  - HYPERKALAEMIA [None]
  - OVERDOSE [None]
